FAERS Safety Report 11933877 (Version 3)
Quarter: 2016Q1

REPORT INFORMATION
  Report Type: Report from Study
  Country: ES (occurrence: ES)
  Receive Date: 20160121
  Receipt Date: 20160129
  Transmission Date: 20160526
  Serious: Yes (Hospitalization, Other)
  Sender: FDA-Public Use
  Company Number: ES-009507513-1601ESP003583

PATIENT
  Age: 73 Year
  Sex: Male

DRUGS (6)
  1. PEMBROLIZUMAB. [Suspect]
     Active Substance: PEMBROLIZUMAB
     Indication: METASTATIC MALIGNANT MELANOMA
     Dosage: 2 MG/KG, 21 DAYS
     Dates: start: 20150721, end: 2016
  2. METFORMIN [Concomitant]
     Active Substance: METFORMIN HYDROCHLORIDE
     Dosage: TOTAL DAILY DOSE REPORTED AS 0-1-0, QD
  3. ATORVASTATIN [Concomitant]
     Active Substance: ATORVASTATIN
     Dosage: TOTAL DAILY DOSE REPORTED AS 0-0-1
  4. DUODART [Concomitant]
     Active Substance: DUTASTERIDE\TAMSULOSIN
     Dosage: TOTAL DAILY DOSE REPORTED AS 0-0-1, QD
  5. PRITOR PLUS [Concomitant]
     Active Substance: TELMISARTAN
     Dosage: 80 MG, QD
  6. TROMALYT [Concomitant]
     Active Substance: ASPIRIN
     Dosage: 150 MG, QD

REACTIONS (13)
  - Cellulitis [Recovered/Resolved]
  - Scrotal angiokeratoma [Not Recovered/Not Resolved]
  - Lipoma [Not Recovered/Not Resolved]
  - Malignant neoplasm progression [Not Recovered/Not Resolved]
  - Metastatic malignant melanoma [Not Recovered/Not Resolved]
  - Perianal streptococcal infection [Recovered/Resolved]
  - Limb injury [Unknown]
  - Pruritus [Unknown]
  - Blood alkaline phosphatase increased [Recovering/Resolving]
  - Asthenia [Unknown]
  - Gamma-glutamyltransferase increased [Recovering/Resolving]
  - Blood glucose increased [Recovering/Resolving]
  - Candida infection [Recovered/Resolved]

NARRATIVE: CASE EVENT DATE: 20150730
